FAERS Safety Report 23232618 (Version 2)
Quarter: 2024Q1

REPORT INFORMATION
  Report Type: Report from Study
  Country: DE (occurrence: DE)
  Receive Date: 20231128
  Receipt Date: 20240119
  Transmission Date: 20240410
  Serious: Yes (Life-Threatening, Hospitalization, Other)
  Sender: FDA-Public Use
  Company Number: DE-UCBSA-2022052354

PATIENT
  Age: 66 Year
  Sex: Male
  Weight: 72 kg

DRUGS (19)
  1. BIMEKIZUMAB [Suspect]
     Active Substance: BIMEKIZUMAB
     Indication: Psoriasis
     Dosage: 320 MILLIGRAM, EV 4 WEEKS
     Route: 058
     Dates: start: 20220720, end: 20221001
  2. ASPIRIN [Concomitant]
     Active Substance: ASPIRIN
     Indication: Myocardial infarction
     Dosage: 100 MILLIGRAM, ONCE DAILY (QD)
     Route: 048
     Dates: start: 2005
  3. ASPIRIN [Concomitant]
     Active Substance: ASPIRIN
     Indication: Prophylaxis
  4. PANTOPRAZOLE [Concomitant]
     Active Substance: PANTOPRAZOLE
     Indication: Myocardial infarction
     Dosage: 40 MILLIGRAM, ONCE DAILY (QD)
     Route: 048
     Dates: start: 20221008
  5. ATORVASTATIN [Concomitant]
     Active Substance: ATORVASTATIN
     Indication: Myocardial infarction
     Dosage: 40 MILLIGRAM, ONCE DAILY (QD)
     Route: 048
     Dates: start: 2005
  6. ATORVASTATIN [Concomitant]
     Active Substance: ATORVASTATIN
     Indication: Prophylaxis
  7. TORSEMIDE [Concomitant]
     Active Substance: TORSEMIDE
     Indication: Prophylaxis
     Dosage: 10 MILLIGRAM, ONCE DAILY (QD)
     Route: 048
     Dates: start: 2005
  8. TORSEMIDE [Concomitant]
     Active Substance: TORSEMIDE
     Dosage: 10 MILLIGRAM, ONCE DAILY (QD)
     Dates: start: 20221008
  9. CLOPIDOGREL [Concomitant]
     Active Substance: CLOPIDOGREL BISULFATE
     Indication: Prophylaxis
     Dosage: 75 MILLIGRAM, ONCE DAILY (QD)
     Route: 048
     Dates: start: 2005
  10. SPIRONOLACTONE [Concomitant]
     Active Substance: SPIRONOLACTONE
     Indication: Prophylaxis
     Dosage: 25 MILLIGRAM, ONCE DAILY (QD)
     Route: 048
     Dates: start: 2005
  11. SPIRONOLACTONE [Concomitant]
     Active Substance: SPIRONOLACTONE
     Dosage: 50 MILLIGRAM, ONCE DAILY (QD)
     Route: 048
     Dates: start: 20221008
  12. BISOPROLOL [Concomitant]
     Active Substance: BISOPROLOL\BISOPROLOL FUMARATE
     Indication: Prophylaxis
     Dosage: 7.5 MILLIGRAM, 2X/DAY (BID)
  13. BISOPROLOL [Concomitant]
     Active Substance: BISOPROLOL\BISOPROLOL FUMARATE
     Dosage: 2.5 MILLIGRAM, 2X/DAY (BID)
     Route: 048
     Dates: start: 2005
  14. AMPHOTERICIN B [Concomitant]
     Active Substance: AMPHOTERICIN B
     Indication: Oral candidiasis
  15. CORDAREX [Concomitant]
     Active Substance: AMIODARONE
     Indication: Product used for unknown indication
     Dosage: 200 MILLIGRAM, ONCE DAILY (QD)
     Route: 048
  16. ENTRESTO [Concomitant]
     Active Substance: SACUBITRIL\VALSARTAN
     Indication: Product used for unknown indication
     Dosage: 4MG/26MG 1-0-1 TABLETS
     Route: 048
  17. ATORVASTATIN [Concomitant]
     Active Substance: ATORVASTATIN
     Indication: Product used for unknown indication
     Dosage: 40 MILLIGRAM, ONCE DAILY (QD)
     Route: 048
  18. JARDIANCE [Concomitant]
     Active Substance: EMPAGLIFLOZIN
     Indication: Product used for unknown indication
     Dosage: 10 MILLIGRAM, ONCE DAILY (QD)
     Route: 048
     Dates: start: 20221008
  19. PANTOPRAZOLE SODIUM [Concomitant]
     Active Substance: PANTOPRAZOLE SODIUM
     Indication: Prophylaxis
     Dosage: 200 MILLIGRAM, ONCE DAILY (QD)
     Route: 048
     Dates: start: 2005

REACTIONS (24)
  - Arrhythmia [Not Recovered/Not Resolved]
  - Bradyarrhythmia [Not Recovered/Not Resolved]
  - Implantable defibrillator insertion [Recovering/Resolving]
  - Supraventricular tachycardia [Recovering/Resolving]
  - Ventricular tachycardia [Recovering/Resolving]
  - Left ventricular dysfunction [Recovering/Resolving]
  - Inflammatory marker increased [Recovering/Resolving]
  - Atelectasis [Recovering/Resolving]
  - Bronchiectasis [Recovering/Resolving]
  - Cardioversion [Recovering/Resolving]
  - Coronary angioplasty [Recovering/Resolving]
  - Coronary arterial stent insertion [Recovering/Resolving]
  - Endotracheal intubation [Recovering/Resolving]
  - Antibiotic therapy [Recovering/Resolving]
  - Circulatory collapse [Recovering/Resolving]
  - Cardiogenic shock [Recovering/Resolving]
  - Cardiac failure chronic [Recovering/Resolving]
  - Ischaemic cardiomyopathy [Recovering/Resolving]
  - Oral candidiasis [Unknown]
  - Blood potassium decreased [Recovered/Resolved]
  - Aortic aneurysm [Not Recovered/Not Resolved]
  - Catheterisation cardiac [Unknown]
  - Cardiomegaly [Not Recovered/Not Resolved]
  - Hypertension [Recovered/Resolved]

NARRATIVE: CASE EVENT DATE: 20220820
